FAERS Safety Report 18201998 (Version 1)
Quarter: 2020Q3

REPORT INFORMATION
  Report Type: Spontaneous
  Country: US (occurrence: US)
  Receive Date: 20200827
  Receipt Date: 20200827
  Transmission Date: 20201103
  Serious: No
  Sender: FDA-Public Use
  Company Number: None

PATIENT

DRUGS (2)
  1. ETOMIDATE. [Suspect]
     Active Substance: ETOMIDATE
  2. PANTOPRAZOLE SODIUM. [Suspect]
     Active Substance: PANTOPRAZOLE SODIUM

REACTIONS (4)
  - Intercepted product administration error [None]
  - Wrong product stored [None]
  - Product appearance confusion [None]
  - Product label confusion [None]
